FAERS Safety Report 8539802-9 (Version None)
Quarter: 2012Q3

REPORT INFORMATION
  Report Type: 
  Country: None (occurrence: None)
  Receive Date: 20120726
  Receipt Date: 20120720
  Transmission Date: 20120928
  Serious: Yes (Other)
  Sender: FDA-Public Use
  Company Number: BR-PFIZER INC-2012148670

PATIENT
  Age: 58 Year
  Sex: Male
  Weight: 91 kg

DRUGS (7)
  1. TRAMADOL [Concomitant]
  2. DICLOFENAC [Concomitant]
     Dosage: STRENGTH 1000MG
  3. GABAPENTIN [Concomitant]
  4. CODEINE [Concomitant]
  5. SUTENT [Suspect]
     Indication: RENAL CANCER
     Dosage: 50 MG, 1X/DAY (FIRST CYCLE, CYCLE 4 TO 2)
     Route: 048
     Dates: start: 20120531
  6. PARACETAMOL [Concomitant]
     Indication: PAIN
     Dosage: STRENGTH 750 MG
  7. AREDIA [Concomitant]
     Indication: BONE LESION
     Dosage: 500 ML, ONCE MONTHLY

REACTIONS (13)
  - ERYSIPELAS [None]
  - HAEMORRHAGE [None]
  - DERMATITIS [None]
  - PAIN IN EXTREMITY [None]
  - PRURITUS [None]
  - BLISTER [None]
  - SKIN EXFOLIATION [None]
  - CHROMATURIA [None]
  - ARTHRALGIA [None]
  - ORAL PAIN [None]
  - YELLOW SKIN [None]
  - DRY SKIN [None]
  - RASH [None]
